FAERS Safety Report 11882294 (Version 1)
Quarter: 2015Q4

REPORT INFORMATION
  Report Type: Spontaneous
  Country: JP (occurrence: JP)
  Receive Date: 20151231
  Receipt Date: 20151231
  Transmission Date: 20160305
  Serious: Yes (Other)
  Sender: FDA-Public Use
  Company Number: JP-009507513-1512JPN005599

PATIENT
  Age: 55 Year
  Sex: Male
  Weight: 69 kg

DRUGS (11)
  1. NEXIUM [Concomitant]
     Active Substance: ESOMEPRAZOLE MAGNESIUM
     Indication: GASTRITIS
     Dosage: 20 MG, QD, FORMULATION: PER ORAL PREPARATION (POR)
     Route: 048
     Dates: start: 20151118
  2. ATORVASTATIN [Concomitant]
     Active Substance: ATORVASTATIN
     Indication: LIPIDS ABNORMAL
     Dosage: 10 MG, QD, FORMULATION: PER ORAL PREPARATION (POR)
     Route: 048
     Dates: start: 20151109
  3. AMLODIPINE [Concomitant]
     Active Substance: AMLODIPINE BESYLATE
     Indication: HYPERTENSION
     Dosage: 5 MG, QD, FORMULATION: PER ORAL PREPARATION (POR)
     Route: 048
     Dates: start: 20151022, end: 20151127
  4. FEBURIC [Concomitant]
     Active Substance: FEBUXOSTAT
     Dosage: UNK, FORMULATION: PER ORAL PREPARATION (POR)
     Route: 048
  5. BAKTAR [Concomitant]
     Active Substance: SULFAMETHOXAZOLE\TRIMETHOPRIM
     Dosage: UNK, FORMULATION: PER ORAL PREPARATION (POR)
     Route: 048
  6. KALIMATE [Concomitant]
     Active Substance: CALCIUM POLYSTYRENE SULFONATE
     Indication: HYPERKALAEMIA
     Dosage: 25 G, TID
     Route: 048
     Dates: start: 20151119, end: 20151209
  7. CILNIDIPINE [Concomitant]
     Active Substance: CILNIDIPINE
     Indication: HYPERTENSION
     Dosage: 20 MG, QD, FORMULATION: PER ORAL PREPARATION (POR)
     Route: 048
     Dates: start: 20151028
  8. COMELIAN [Concomitant]
     Active Substance: DILAZEP
     Indication: IGA NEPHROPATHY
     Dosage: 50 MG, TID, FORMULATION: PER ORAL PREPARATION (POR)
     Route: 048
     Dates: start: 20151118
  9. NU-LOTAN TABLETS 50MG [Suspect]
     Active Substance: LOSARTAN
     Indication: HYPERTENSION
     Dosage: 50 MG, ONCE A DAY
     Route: 048
     Dates: start: 20151128, end: 20151129
  10. SULFAMETHOXAZOLE AND TRIMETHOPRIM [Suspect]
     Active Substance: SULFAMETHOXAZOLE\TRIMETHOPRIM
     Indication: INFECTION PROPHYLAXIS
     Dosage: 1 DOSAGE FORM DAILY (ALSO REPORTED AS DIVIDED DOSE FREQUENCY UNKNOWN)
     Route: 048
     Dates: start: 20151123, end: 20151130
  11. PREDONINE [Concomitant]
     Active Substance: PREDNISOLONE\PREDNISOLONE ACETATE\PREDNISOLONE SODIUM SUCCINATE
     Indication: IGA NEPHROPATHY
     Dosage: 40 MG, QD, FORMULATION: PER ORAL PREPARATION (POR)
     Route: 048
     Dates: start: 20151121, end: 20151211

REACTIONS (1)
  - Liver disorder [Recovered/Resolved]

NARRATIVE: CASE EVENT DATE: 20151130
